FAERS Safety Report 4562243-6 (Version None)
Quarter: 2005Q1

REPORT INFORMATION
  Report Type: 
  Country: None (occurrence: None)
  Receive Date: 20050124
  Receipt Date: 20050111
  Transmission Date: 20050727
  Serious: Yes (Other)
  Sender: FDA-Public Use
  Company Number: 2004077254

PATIENT
  Age: 44 Year
  Sex: Female
  Weight: 77.1115 kg

DRUGS (8)
  1. NEURONTIN [Suspect]
     Indication: PAIN
     Dosage: 600 MG, ORAL
     Route: 048
     Dates: start: 20030101
  2. FLUOXETINE HYDROCHLORIDE [Concomitant]
  3. MONTELUKAST SODIUM (MONTELUKAST SODIUM) [Concomitant]
  4. BECLOMETHASONE DIPROPIONATE (BECLOMETHASONE DIPROPIONATE) [Concomitant]
  5. FLUTICASONE PROPIONATE [Concomitant]
  6. ORCIPRENALINE SUFLATE (ORCIPRENALINE SUFLATE) [Concomitant]
  7. MOMETASONE FUROATE [Concomitant]
  8. SALBUTAMOL (SALBUTAMOL) [Concomitant]

REACTIONS (6)
  - ABNORMAL DREAMS [None]
  - CONDITION AGGRAVATED [None]
  - HYPOAESTHESIA [None]
  - LYME DISEASE [None]
  - MULTIPLE SCLEROSIS [None]
  - PAIN [None]
